FAERS Safety Report 6858825-9 (Version None)
Quarter: 2010Q3

REPORT INFORMATION
  Report Type: 
  Country: None (occurrence: None)
  Receive Date: 20100719
  Receipt Date: 20080428
  Transmission Date: 20110219
  Serious: Yes (Other)
  Sender: FDA-Public Use
  Company Number: US-PFIZER INC-2008015974

PATIENT
  Sex: Female
  Weight: 72.1 kg

DRUGS (4)
  1. CHANTIX [Suspect]
     Indication: SMOKING CESSATION THERAPY
     Route: 048
     Dates: start: 20080131, end: 20080208
  2. SYNTHROID [Concomitant]
     Route: 048
  3. ZANTAC [Concomitant]
     Route: 048
  4. DONNATAL [Concomitant]
     Route: 048

REACTIONS (5)
  - HYPERTENSION [None]
  - INCORRECT DOSE ADMINISTERED [None]
  - MUSCULOSKELETAL PAIN [None]
  - NECK PAIN [None]
  - PAIN IN EXTREMITY [None]
